FAERS Safety Report 17820472 (Version 1)
Quarter: 2020Q2

REPORT INFORMATION
  Report Type: Spontaneous
  Country: JP (occurrence: JP)
  Receive Date: 20200525
  Receipt Date: 20200525
  Transmission Date: 20200714
  Serious: Yes (Other)
  Sender: FDA-Public Use
  Company Number: JP-GLAXOSMITHKLINE-JP2020084885

PATIENT
  Sex: Female

DRUGS (1)
  1. ZANTAC [Suspect]
     Active Substance: RANITIDINE HYDROCHLORIDE
     Indication: URTICARIA
     Dosage: UNK
     Route: 048
     Dates: start: 2015

REACTIONS (2)
  - Product use in unapproved indication [Unknown]
  - Precancerous condition [Unknown]

NARRATIVE: CASE EVENT DATE: 2015
